FAERS Safety Report 23118863 (Version 5)
Quarter: 2023Q4

REPORT INFORMATION
  Report Type: Spontaneous
  Country: FR (occurrence: FR)
  Receive Date: 20231028
  Receipt Date: 20231221
  Transmission Date: 20240109
  Serious: Yes (Hospitalization, Other)
  Sender: FDA-Public Use
  Company Number: None

PATIENT
  Age: 18 Year
  Sex: Male

DRUGS (6)
  1. IBUPROFEN [Suspect]
     Active Substance: IBUPROFEN
     Indication: Cheilitis
     Dosage: 400 MILLIGRAM, TABLET
     Route: 065
  2. IBUPROFEN [Suspect]
     Active Substance: IBUPROFEN
     Dosage: UNK
     Route: 065
  3. MUPIROCIN [Concomitant]
     Active Substance: MUPIROCIN
     Indication: Abscess of eyelid
     Dosage: 2 %, EVERY 8 HRS, 2 %, TID, IN NOSE AND EARS
     Route: 061
  4. VALACYCLOVIR HYDROCHLORIDE [Concomitant]
     Active Substance: VALACYCLOVIR HYDROCHLORIDE
     Indication: Cheilitis
     Dosage: 500 MILLIGRAM, EVERY 12 HRS (BID)
     Route: 048
  5. FUSIDIC ACID [Concomitant]
     Active Substance: FUSIDIC ACID
     Indication: Cheilitis
     Dosage: 500 MILLIGRAM, EVERY 12 HRS (BID)
     Route: 048
  6. AMOXICILLIN\CLAVULANIC ACID [Concomitant]
     Active Substance: AMOXICILLIN\CLAVULANIC ACID
     Indication: Product used for unknown indication
     Dosage: QD (TID (1G/125MG))
     Route: 048

REACTIONS (19)
  - Self-medication [Recovered/Resolved]
  - Staphylococcal sepsis [Recovered/Resolved]
  - Lip infection [Recovered/Resolved]
  - Abscess of eyelid [Recovered/Resolved]
  - Septic embolus [Unknown]
  - Skin infection [Recovered/Resolved]
  - Cellulitis [Unknown]
  - Cellulitis gangrenous [Recovered/Resolved]
  - Intentional product misuse [Unknown]
  - Eyelid infection [Recovered/Resolved]
  - Skin infection [Recovered/Resolved]
  - Condition aggravated [Recovered/Resolved]
  - Septic pulmonary embolism [Recovered/Resolved]
  - Cheilitis [Recovered/Resolved]
  - Lip swelling [Recovered/Resolved]
  - Chest pain [Recovered/Resolved]
  - Pyrexia [Recovered/Resolved]
  - Dyspnoea [Recovered/Resolved]
  - Off label use [Unknown]
